FAERS Safety Report 5311445-X (Version None)
Quarter: 2007Q2

REPORT INFORMATION
  Report Type: 
  Country: None (occurrence: None)
  Receive Date: 20070426
  Receipt Date: 20070426
  Transmission Date: 20071010
  Serious: Yes (Hospitalization, Other)
  Sender: FDA-Public Use
  Company Number: None

PATIENT
  Age: 32 Year
  Sex: Female
  Weight: 63.9572 kg

DRUGS (3)
  1. HYDROXYPROGESTERONE CAPROATE [Suspect]
     Indication: PREMATURE BABY
     Dosage: 250 MG 1X PER WEEK, IM
     Route: 030
     Dates: start: 20060816, end: 20061102
  2. VITAMIN AND MINERAL PRENATAL SUPPLEMENT W/ FOLIC ACID CAP [Concomitant]
  3. TYELONOL PM [Concomitant]

REACTIONS (1)
  - CERVICAL INCOMPETENCE [None]
